FAERS Safety Report 4664723-1 (Version None)
Quarter: 2005Q2

REPORT INFORMATION
  Report Type: 
  Country: None (occurrence: None)
  Receive Date: 20050516
  Receipt Date: 20050502
  Transmission Date: 20051028
  Serious: Yes (Other)
  Sender: FDA-Public Use
  Company Number: 106587ISR

PATIENT
  Age: 32 Year
  Sex: Female

DRUGS (1)
  1. GLATIRAMER ACETATE [Suspect]
     Indication: MULTIPLE SCLEROSIS
     Dosage: 20 MILLIGRAM, SUBCUTANEOSU
     Route: 058
     Dates: start: 19990801

REACTIONS (10)
  - INJECTION SITE ERYTHEMA [None]
  - INJECTION SITE HAEMORRHAGE [None]
  - INJECTION SITE NECROSIS [None]
  - INJECTION SITE SWELLING [None]
  - PROCEDURAL COMPLICATION [None]
  - PURULENCE [None]
  - SCAB [None]
  - SCAR [None]
  - SCRATCH [None]
  - WOUND [None]
